FAERS Safety Report 9007440 (Version 1)
Quarter: 2013Q1

REPORT INFORMATION
  Report Type: Report from Study
  Country: US (occurrence: US)
  Receive Date: 20130110
  Receipt Date: 20130110
  Transmission Date: 20140127
  Serious: Yes (Other)
  Sender: FDA-Public Use
  Company Number: US-ABBOTT-13P-163-1030317-00

PATIENT
  Sex: Male
  Weight: 103.51 kg

DRUGS (7)
  1. NIASPAN (COATED) [Suspect]
     Indication: ARTERIOSCLEROSIS
     Dosage: REPORTED ALWAYS BEEN ON THIS DOSE
     Dates: start: 1998
  2. SIMVASTATIN [Concomitant]
     Indication: PRODUCT USED FOR UNKNOWN INDICATION
  3. LISINOPRIL [Concomitant]
     Indication: PRODUCT USED FOR UNKNOWN INDICATION
  4. HYDROCHLOROTHIAZIDE [Concomitant]
     Indication: PRODUCT USED FOR UNKNOWN INDICATION
  5. BABY ASA [Concomitant]
     Indication: PRODUCT USED FOR UNKNOWN INDICATION
  6. UNKNOWN DIURETIC [Concomitant]
     Indication: PRODUCT USED FOR UNKNOWN INDICATION
  7. ATENOLOL [Concomitant]
     Indication: PRODUCT USED FOR UNKNOWN INDICATION

REACTIONS (7)
  - Renal cell carcinoma [Recovered/Resolved]
  - Sarcoma [Unknown]
  - Metastases to pelvis [Recovered/Resolved]
  - Sarcoma [Unknown]
  - Cataract [Not Recovered/Not Resolved]
  - Visual acuity reduced [Unknown]
  - Blood glucose increased [Not Recovered/Not Resolved]
